FAERS Safety Report 24452704 (Version 3)
Quarter: 2024Q4

REPORT INFORMATION
  Report Type: Spontaneous
  Country: US (occurrence: US)
  Receive Date: 20241017
  Receipt Date: 20241230
  Transmission Date: 20250115
  Serious: No
  Sender: VERTEX
  Company Number: US-VERTEX PHARMACEUTICALS-2024-016182

PATIENT
  Sex: Male

DRUGS (1)
  1. KALYDECO [Suspect]
     Active Substance: IVACAFTOR
     Indication: Chronic obstructive pulmonary disease
     Dosage: 150 MG, BID
     Route: 048

REACTIONS (2)
  - Diarrhoea [Unknown]
  - Chronic obstructive pulmonary disease [Unknown]
